FAERS Safety Report 7441768-X (Version None)
Quarter: 2011Q2

REPORT INFORMATION
  Report Type: 
  Country: None (occurrence: None)
  Receive Date: 20110419
  Receipt Date: 20110413
  Transmission Date: 20111010
  Serious: Yes (Death, Hospitalization)
  Sender: FDA-Public Use
  Company Number: 2011SP015535

PATIENT
  Age: 64 Year
  Sex: Female
  Weight: 46.5 kg

DRUGS (6)
  1. METOPROLOL TARTRATE [Concomitant]
  2. LEVOXYL [Concomitant]
  3. DECADRON [Concomitant]
  4. TEMOZOLOMIDE [Suspect]
     Indication: BREAST CANCER METASTATIC
     Dosage: 100 MG/M2;PO
     Route: 048
     Dates: start: 20110224
  5. IRINOTECAN HYDROCHLORIDE [Suspect]
     Indication: BREAST CANCER METASTATIC
     Dosage: 125 MG/M2;IV
     Route: 042
     Dates: start: 20110224
  6. MORPHINE [Concomitant]

REACTIONS (11)
  - AGONAL DEATH STRUGGLE [None]
  - THROMBOCYTOPENIA [None]
  - RECTAL HAEMORRHAGE [None]
  - MUCOSAL INFLAMMATION [None]
  - COMA [None]
  - ASTHENIA [None]
  - GENERAL PHYSICAL HEALTH DETERIORATION [None]
  - SOMNOLENCE [None]
  - ATELECTASIS [None]
  - LETHARGY [None]
  - DEPRESSED LEVEL OF CONSCIOUSNESS [None]
